FAERS Safety Report 16100116 (Version 1)
Quarter: 2019Q1

REPORT INFORMATION
  Report Type: Spontaneous
  Country: US (occurrence: US)
  Receive Date: 20190219
  Receipt Date: 20190219
  Transmission Date: 20190418
  Serious: Yes (Hospitalization)
  Sender: FDA-Public Use
  Company Number: None

PATIENT
  Age: 72 Year
  Sex: Female
  Weight: 73.9 kg

DRUGS (1)
  1. OSIMERTINIB. [Suspect]
     Active Substance: OSIMERTINIB
     Indication: GLIOBLASTOMA
     Route: 048
     Dates: start: 20190204

REACTIONS (3)
  - Mental status changes [None]
  - Headache [None]
  - Generalised tonic-clonic seizure [None]
